FAERS Safety Report 6180339-2 (Version None)
Quarter: 2009Q2

REPORT INFORMATION
  Report Type: 
  Country: None (occurrence: None)
  Receive Date: 20090504
  Receipt Date: 20090504
  Transmission Date: 20091009
  Serious: Yes (Hospitalization)
  Sender: FDA-Public Use
  Company Number: None

PATIENT

DRUGS (1)
  1. HYOSCINE HBR HYT [Suspect]
     Indication: DROOLING
     Dosage: 1 PATCH EVERY 4  DAYS, TRANSDERMAL
     Route: 062

REACTIONS (7)
  - ABDOMINAL PAIN [None]
  - APPENDIX DISORDER [None]
  - DRUG INEFFECTIVE [None]
  - DYSURIA [None]
  - INFLAMMATION [None]
  - OFF LABEL USE [None]
  - STRESS [None]
